FAERS Safety Report 10879754 (Version 2)
Quarter: 2015Q1

REPORT INFORMATION
  Report Type: Report from Study
  Country: BR (occurrence: BR)
  Receive Date: 20150302
  Receipt Date: 20150317
  Transmission Date: 20150721
  Serious: Yes (Other)
  Sender: FDA-Public Use
  Company Number: PHHY2015BR024650

PATIENT
  Sex: Female
  Weight: 64 kg

DRUGS (1)
  1. ACLASTA [Suspect]
     Active Substance: ZOLEDRONIC ACID
     Indication: OSTEOPOROSIS
     Dosage: 5 MG (5 MG/100 ML), ONCE A YEAR
     Route: 042
     Dates: start: 20141015

REACTIONS (4)
  - Headache [Unknown]
  - Pain [Unknown]
  - Spinal fracture [Not Recovered/Not Resolved]
  - Malaise [Unknown]
